FAERS Safety Report 8102075-5 (Version None)
Quarter: 2012Q1

REPORT INFORMATION
  Report Type: 
  Country: None (occurrence: None)
  Receive Date: 20120131
  Receipt Date: 20120126
  Transmission Date: 20120608
  Serious: Yes (Hospitalization)
  Sender: FDA-Public Use
  Company Number: FR-MERCK-1201FRA00090

PATIENT
  Age: 72 Year
  Sex: Female

DRUGS (9)
  1. FOSINOPRIL SODIUM [Concomitant]
     Route: 065
  2. NOROXIN [Suspect]
     Route: 048
     Dates: start: 20110901, end: 20111004
  3. POTASSIUM CHLORIDE [Concomitant]
     Route: 065
  4. RIVASTIGMINE TARTRATE [Concomitant]
     Route: 065
  5. LEVOTHYROXINE SODIUM [Suspect]
     Route: 048
  6. METFORMIN [Concomitant]
     Route: 065
  7. BUMETANIDE [Concomitant]
     Route: 065
  8. ESCITALOPRAM OXALATE [Concomitant]
     Route: 065
  9. OMEPRAZOLE [Concomitant]
     Route: 065

REACTIONS (1)
  - DRUG RASH WITH EOSINOPHILIA AND SYSTEMIC SYMPTOMS [None]
